FAERS Safety Report 25538400 (Version 1)
Quarter: 2025Q3

REPORT INFORMATION
  Report Type: Spontaneous
  Country: US (occurrence: US)
  Receive Date: 20250710
  Receipt Date: 20250710
  Transmission Date: 20251020
  Serious: Yes (Other)
  Sender: RANBAXY
  Company Number: US-SUN PHARMACEUTICAL INDUSTRIES INC-2025R1-516022

PATIENT
  Age: 26 Year
  Sex: Male

DRUGS (4)
  1. BACLOFEN [Suspect]
     Active Substance: BACLOFEN
     Indication: Tachycardia
     Route: 065
  2. BACLOFEN [Suspect]
     Active Substance: BACLOFEN
     Indication: Tremor
  3. BACLOFEN [Suspect]
     Active Substance: BACLOFEN
     Indication: Paranoia
  4. BACLOFEN [Suspect]
     Active Substance: BACLOFEN
     Indication: Agitation

REACTIONS (1)
  - Condition aggravated [Unknown]
